FAERS Safety Report 14501551 (Version 1)
Quarter: 2018Q1

REPORT INFORMATION
  Report Type: Spontaneous
  Country: US (occurrence: US)
  Receive Date: 20180207
  Receipt Date: 20180207
  Transmission Date: 20180509
  Serious: No
  Sender: FDA-Public Use
  Company Number: US-AMGEN-USASP2018002665

PATIENT
  Age: 80 Year
  Sex: Male

DRUGS (4)
  1. NEULASTA [Suspect]
     Active Substance: PEGFILGRASTIM
     Indication: MYELODYSPLASTIC SYNDROME
     Dosage: UNK
     Route: 065
     Dates: end: 20170321
  2. NEULASTA [Suspect]
     Active Substance: PEGFILGRASTIM
     Indication: REFRACTORY CYTOPENIA WITH UNILINEAGE DYSPLASIA
  3. NEULASTA [Suspect]
     Active Substance: PEGFILGRASTIM
     Indication: MAGNESIUM METABOLISM DISORDER
  4. NEULASTA [Suspect]
     Active Substance: PEGFILGRASTIM
     Indication: NEOPLASM

REACTIONS (1)
  - Off label use [Unknown]
